FAERS Safety Report 25775221 (Version 2)
Quarter: 2025Q3

REPORT INFORMATION
  Report Type: Spontaneous
  Country: JP (occurrence: JP)
  Receive Date: 20250909
  Receipt Date: 20250919
  Transmission Date: 20251020
  Serious: Yes (Other)
  Sender: AMGEN
  Company Number: JP-KYOWAKIRIN-2025KK017231

PATIENT
  Age: 3 Decade

DRUGS (4)
  1. PEGFILGRASTIM [Suspect]
     Active Substance: PEGFILGRASTIM
     Indication: Product used for unknown indication
     Route: 058
  2. ONCOVIN [Concomitant]
     Active Substance: VINCRISTINE SULFATE
     Indication: Rhabdomyosarcoma
     Route: 065
  3. CYCLOPHOSPHAMIDE [Concomitant]
     Active Substance: CYCLOPHOSPHAMIDE
     Indication: Rhabdomyosarcoma
     Route: 065
  4. COSMEGEN [Concomitant]
     Active Substance: DACTINOMYCIN
     Indication: Rhabdomyosarcoma
     Route: 065

REACTIONS (2)
  - Febrile neutropenia [Unknown]
  - Chemotherapy [Unknown]

NARRATIVE: CASE EVENT DATE: 20250901
